FAERS Safety Report 19900208 (Version 3)
Quarter: 2021Q4

REPORT INFORMATION
  Report Type: Report from Study
  Country: BR (occurrence: BR)
  Receive Date: 20210930
  Receipt Date: 20211027
  Transmission Date: 20220303
  Serious: Yes (Hospitalization, Other)
  Sender: FDA-Public Use
  Company Number: BR-UCBSA-2021046000

PATIENT
  Age: 58 Year
  Sex: Female
  Weight: 80 kg

DRUGS (10)
  1. CERTOLIZUMAB PEGOL [Suspect]
     Active Substance: CERTOLIZUMAB PEGOL
     Indication: Rheumatoid arthritis
     Dosage: 400 MILLIGRAM, WEEKLY (QW)
     Route: 058
     Dates: start: 20210825, end: 20210901
  2. CERTOLIZUMAB PEGOL [Suspect]
     Active Substance: CERTOLIZUMAB PEGOL
     Dosage: 400 MILLIGRAM, EV 2 WEEKS(QOW)
     Route: 058
     Dates: start: 2021, end: 2021
  3. CERTOLIZUMAB PEGOL [Suspect]
     Active Substance: CERTOLIZUMAB PEGOL
     Dosage: 400 MILLIGRAM, EV 30 DAYS
     Route: 058
     Dates: start: 202109, end: 20210915
  4. COVID-19 VACCINE NOS [Suspect]
     Active Substance: COVID-19 VACCINE NOS
     Indication: COVID-19 immunisation
  5. VENLAFAXINE HYDROCHLORIDE [Concomitant]
     Active Substance: VENLAFAXINE HYDROCHLORIDE
     Indication: Antidepressant therapy
     Dosage: 150 MILLIGRAM, ONCE DAILY (QD)
     Route: 048
     Dates: start: 2016
  6. LEFLUNOMIDE [Concomitant]
     Active Substance: LEFLUNOMIDE
     Indication: Arthritis
     Dosage: 20 MILLIGRAM, ONCE DAILY (QD)
     Route: 048
     Dates: start: 2012
  7. AZITHROMYCIN ANHYDROUS [Concomitant]
     Active Substance: AZITHROMYCIN ANHYDROUS
     Indication: Pneumonia bacterial
     Dosage: UNK
     Route: 065
     Dates: start: 20210910, end: 20210911
  8. AZITHROMYCIN ANHYDROUS [Concomitant]
     Active Substance: AZITHROMYCIN ANHYDROUS
     Indication: Urinary tract infection
  9. AMOXICILLIN\CLAVULANATE POTASSIUM [Concomitant]
     Active Substance: AMOXICILLIN\CLAVULANATE POTASSIUM
     Indication: Pneumonia bacterial
     Dosage: 2 DOSAGE FORM, 2X/DAY (BID)
     Route: 048
     Dates: start: 20210912
  10. AMOXICILLIN\CLAVULANATE POTASSIUM [Concomitant]
     Active Substance: AMOXICILLIN\CLAVULANATE POTASSIUM
     Indication: Urinary tract infection

REACTIONS (11)
  - Pneumonia bacterial [Recovering/Resolving]
  - Delirium [Recovered/Resolved]
  - Urinary tract infection [Recovering/Resolving]
  - Pain [Recovered/Resolved]
  - Weight decreased [Recovering/Resolving]
  - Pyrexia [Recovered/Resolved]
  - Limb mass [Recovered/Resolved]
  - Pain in extremity [Recovered/Resolved]
  - Vaccination complication [Unknown]
  - COVID-19 immunisation [Unknown]
  - Product use issue [Unknown]

NARRATIVE: CASE EVENT DATE: 20210901
